FAERS Safety Report 11061999 (Version 1)
Quarter: 2015Q2

REPORT INFORMATION
  Report Type: Spontaneous
  Country: US (occurrence: US)
  Receive Date: 20150424
  Receipt Date: 20150424
  Transmission Date: 20150821
  Serious: Yes (Other)
  Sender: FDA-Public Use
  Company Number: US-ROCHE-1567708

PATIENT
  Sex: Female

DRUGS (1)
  1. HERCEPTIN [Suspect]
     Active Substance: TRASTUZUMAB
     Indication: BREAST CANCER
     Route: 042

REACTIONS (6)
  - Cardiac failure chronic [Unknown]
  - Pericarditis [Unknown]
  - Acute respiratory distress syndrome [Unknown]
  - Oxygen saturation decreased [Unknown]
  - Toxicity to various agents [Unknown]
  - Pleural effusion [Unknown]
